FAERS Safety Report 9701218 (Version 1)
Quarter: 2013Q4

REPORT INFORMATION
  Report Type: Spontaneous
  Country: US (occurrence: US)
  Receive Date: 20131121
  Receipt Date: 20131121
  Transmission Date: 20140711
  Serious: No
  Sender: FDA-Public Use
  Company Number: US-GILEAD-2008-0016128

PATIENT
  Age: 48 Year
  Sex: Female

DRUGS (8)
  1. LETAIRIS [Suspect]
     Indication: PULMONARY ARTERIAL HYPERTENSION
     Route: 048
     Dates: start: 20080411
  2. SPRINTEC [Concomitant]
  3. SERTRALINE [Concomitant]
  4. AMLODIPINE [Concomitant]
  5. PRAVASTIN [Concomitant]
  6. ACYCLOVIR [Concomitant]
  7. FUROSEMIDE [Concomitant]
  8. KLOR-CON [Concomitant]

REACTIONS (1)
  - Oedema peripheral [Not Recovered/Not Resolved]
